APPROVED DRUG PRODUCT: DIFLORASONE DIACETATE
Active Ingredient: DIFLORASONE DIACETATE
Strength: 0.05%
Dosage Form/Route: CREAM;TOPICAL
Application: A075508 | Product #001 | TE Code: BX
Applicant: SUN PHARMA CANADA INC
Approved: Apr 24, 2000 | RLD: No | RS: Yes | Type: RX